FAERS Safety Report 4970791-X (Version None)
Quarter: 2006Q2

REPORT INFORMATION
  Report Type: 
  Country: None (occurrence: None)
  Receive Date: 20060411
  Receipt Date: 20060411
  Transmission Date: 20061013
  Serious: Yes (Hospitalization)
  Sender: FDA-Public Use
  Company Number: None

PATIENT
  Age: 75 Year
  Sex: Male
  Weight: 59.9 kg

DRUGS (1)
  1. WARFARIN SODIUM [Suspect]
     Indication: MITRAL VALVE REPLACEMENT
     Dosage: 7.5MG, 7.5MG6X, ORAL
     Route: 048
     Dates: start: 20050105, end: 20051229

REACTIONS (1)
  - INTERNATIONAL NORMALISED RATIO INCREASED [None]
